FAERS Safety Report 18301631 (Version 3)
Quarter: 2022Q3

REPORT INFORMATION
  Report Type: Report from Study
  Country: CA (occurrence: CA)
  Receive Date: 20200923
  Receipt Date: 20220711
  Transmission Date: 20221026
  Serious: Yes (Hospitalization, Other)
  Sender: FDA-Public Use
  Company Number: CA-GLAXOSMITHKLINE-CA2020AMR170058

PATIENT

DRUGS (1)
  1. MEPOLIZUMAB [Suspect]
     Active Substance: MEPOLIZUMAB
     Indication: Asthma
     Dosage: 100 MG, Z (MONTHLY)
     Route: 058
     Dates: start: 20170720

REACTIONS (5)
  - Hepatitis C [Unknown]
  - Hepatic cirrhosis [Unknown]
  - Duodenogastric reflux [Unknown]
  - Generalised oedema [Unknown]
  - Oedema [Unknown]
